FAERS Safety Report 8332588-2 (Version None)
Quarter: 2012Q2

REPORT INFORMATION
  Report Type: 
  Country: None (occurrence: None)
  Receive Date: 20120503
  Receipt Date: 20120427
  Transmission Date: 20120825
  Serious: Yes (Hospitalization)
  Sender: FDA-Public Use
  Company Number: US-BAYER-2011-075151

PATIENT
  Age: 21 Year
  Sex: Female
  Weight: 99.773 kg

DRUGS (5)
  1. NSAID'S [Concomitant]
     Dosage: AS NEEDED
  2. VITAMIN C [Concomitant]
     Dosage: DAILY
  3. YASMIN [Suspect]
     Dosage: UNK
     Dates: start: 20010701, end: 20030301
  4. ASTHMA [Concomitant]
     Dosage: UNK
     Dates: start: 20020101, end: 20040101
  5. LOVASTATIN [Concomitant]
     Dosage: UNK

REACTIONS (1)
  - GALLBLADDER INJURY [None]
